FAERS Safety Report 6505722-4 (Version None)
Quarter: 2009Q4

REPORT INFORMATION
  Report Type: 
  Country: None (occurrence: None)
  Receive Date: 20091218
  Receipt Date: 20091211
  Transmission Date: 20100525
  Serious: Yes (Hospitalization)
  Sender: FDA-Public Use
  Company Number: Z0002592A

PATIENT
  Age: 41 Year
  Sex: Female
  Weight: 85 kg

DRUGS (3)
  1. FLUTICASONE FUROATE [Suspect]
     Indication: CHRONIC OBSTRUCTIVE PULMONARY DISEASE
     Dosage: 200MCG PER DAY
     Route: 055
     Dates: start: 20091123
  2. NOVOLOG [Concomitant]
     Dosage: 30UNIT IN THE MORNING
     Route: 058
     Dates: start: 20091128
  3. NOVOLOG [Concomitant]
     Dosage: 20UNIT AT NIGHT
     Route: 058
     Dates: start: 20091128

REACTIONS (1)
  - PNEUMONIA [None]
